FAERS Safety Report 23946146 (Version 6)
Quarter: 2024Q3

REPORT INFORMATION
  Report Type: Spontaneous
  Country: US (occurrence: US)
  Receive Date: 20240606
  Receipt Date: 20240926
  Transmission Date: 20241017
  Serious: Yes (Hospitalization, Other)
  Sender: AMGEN
  Company Number: US-AMGEN-USASP2024106510

PATIENT
  Age: 64 Year
  Sex: Male

DRUGS (21)
  1. CARFILZOMIB [Suspect]
     Active Substance: CARFILZOMIB
     Indication: Plasma cell myeloma
     Dosage: UNK
     Route: 065
     Dates: start: 20181101, end: 20190703
  2. CARFILZOMIB [Suspect]
     Active Substance: CARFILZOMIB
     Indication: Neoplasm malignant
     Dosage: 110 MILLIGRAM
     Route: 065
     Dates: start: 20240403, end: 20240403
  3. CARFILZOMIB [Suspect]
     Active Substance: CARFILZOMIB
     Indication: Disease progression
  4. DARATUMUMAB [Suspect]
     Active Substance: DARATUMUMAB
     Indication: Plasma cell myeloma
     Dosage: UNK
     Route: 065
     Dates: start: 20181031, end: 20190619
  5. DEXAMETHASONE [Suspect]
     Active Substance: DEXAMETHASONE
     Indication: Plasma cell myeloma
     Dosage: UNK
     Route: 065
     Dates: start: 20181031, end: 201905
  6. DEXAMETHASONE [Suspect]
     Active Substance: DEXAMETHASONE
     Indication: Neoplasm malignant
     Dosage: UNK
     Route: 065
     Dates: start: 20240419, end: 20240503
  7. LENALIDOMIDE [Suspect]
     Active Substance: LENALIDOMIDE
     Indication: Plasma cell myeloma
     Dosage: UNK
     Route: 065
     Dates: start: 201810, end: 20190702
  8. LENALIDOMIDE [Suspect]
     Active Substance: LENALIDOMIDE
     Dosage: UNK
     Route: 065
     Dates: start: 20190722, end: 20190811
  9. LENALIDOMIDE [Suspect]
     Active Substance: LENALIDOMIDE
     Dosage: UNK
     Route: 065
     Dates: start: 20191003, end: 20191023
  10. LENALIDOMIDE [Suspect]
     Active Substance: LENALIDOMIDE
     Dosage: UNK
     Route: 065
     Dates: start: 20191129, end: 20191219
  11. CIALIS [Concomitant]
     Active Substance: TADALAFIL
     Indication: Erectile dysfunction
     Dosage: 20 MILLIGRAM, AS NECESSARY (PRN)
     Route: 048
     Dates: start: 20180110
  12. CHOLECALCIFEROL [Concomitant]
     Active Substance: CHOLECALCIFEROL
     Indication: Prophylaxis
     Dosage: UNK UNK, QWK
     Route: 048
     Dates: start: 20201118
  13. KLONOPIN [Concomitant]
     Active Substance: CLONAZEPAM
     Indication: Product used for unknown indication
     Dosage: 0.5 MILLIGRAM
     Route: 048
     Dates: start: 20220125
  14. ZOLPIDEM [Concomitant]
     Active Substance: ZOLPIDEM TARTRATE
     Indication: Insomnia
     Dosage: 10 MILLIGRAM
     Route: 048
     Dates: start: 20230503
  15. ACYCLOVIR [Concomitant]
     Active Substance: ACYCLOVIR
     Indication: Prophylaxis
     Dosage: 400 MILLIGRAM, Q12H
     Route: 048
     Dates: start: 20231218
  16. LOSARTAN [Concomitant]
     Active Substance: LOSARTAN\LOSARTAN POTASSIUM
     Indication: Hypertension
     Dosage: 100 MILLIGRAM, QD 1 IN 1 DAY
     Route: 048
     Dates: start: 20240218
  17. AMLODIPINE [Concomitant]
     Active Substance: AMLODIPINE BESYLATE
     Indication: Hypertension
     Dosage: 10 MILLIGRAM, QD 1 IN 1 DAY
     Route: 048
     Dates: start: 20240220
  18. ASPIRIN [Concomitant]
     Active Substance: ASPIRIN
     Indication: Prophylaxis
     Dosage: UNK UNK, QD 1 IN 1 DAY
     Route: 048
  19. BUPROPION [Concomitant]
     Active Substance: BUPROPION
     Indication: Depression
     Dosage: 200 MILLIGRAM, QD 1 IN 1 DAY
     Route: 048
  20. ISATUXIMAB [Concomitant]
     Active Substance: ISATUXIMAB
     Indication: Neoplasm malignant
     Dosage: UNK
     Dates: start: 20240403, end: 20240403
  21. COVID-19 vaccine [Concomitant]
     Indication: COVID-19 prophylaxis
     Dosage: UNK
     Dates: start: 20210310

REACTIONS (7)
  - Erectile dysfunction [Not Recovered/Not Resolved]
  - Thrombotic microangiopathy [Recovered/Resolved]
  - Plasma cell myeloma [Unknown]
  - Depression [Not Recovered/Not Resolved]
  - Arthritis [Not Recovered/Not Resolved]
  - Insomnia [Not Recovered/Not Resolved]
  - Peripheral sensory neuropathy [Recovered/Resolved]

NARRATIVE: CASE EVENT DATE: 20180101
